FAERS Safety Report 5407465-7 (Version None)
Quarter: 2007Q3

REPORT INFORMATION
  Report Type: 
  Country: None (occurrence: None)
  Receive Date: 20070807
  Receipt Date: 20070730
  Transmission Date: 20080115
  Serious: Yes (Other)
  Sender: FDA-Public Use
  Company Number: US-GENENTECH-236206

PATIENT
  Age: 43 Year
  Sex: Female

DRUGS (8)
  1. BEVACIZUMAB [Suspect]
     Indication: BREAST CANCER
     Dosage: 10 MG/KG, Q2W
     Route: 042
     Dates: start: 20061102
  2. BEVACIZUMAB [Suspect]
     Dosage: 15 MG/KG, Q3W
  3. TAXOL [Suspect]
     Indication: BREAST CANCER
     Dosage: 175 MG/M2, Q2W
     Dates: start: 20070104
  4. DOXORUBICIN HCL [Suspect]
     Indication: BREAST CANCER
     Dosage: 112 MG, Q2W
     Dates: start: 20061102
  5. CYCLOPHOSPHAMIDE [Suspect]
     Indication: BREAST CANCER
     Dosage: 1120 MG, UNK
     Dates: start: 20061102
  6. NEULASTA [Suspect]
     Indication: BREAST CANCER
     Dosage: 6 MG, UNK
     Route: 058
     Dates: start: 20061103
  7. MEDROL [Concomitant]
     Indication: PROPHYLAXIS
     Route: 048
  8. HYDROCODONE BITARTRATE [Concomitant]
     Indication: PAIN
     Route: 048

REACTIONS (1)
  - MYALGIA [None]
